FAERS Safety Report 5902347-6 (Version None)
Quarter: 2008Q3

REPORT INFORMATION
  Report Type: 
  Country: None (occurrence: None)
  Receive Date: 20080929
  Receipt Date: 20080912
  Transmission Date: 20090109
  Serious: No
  Sender: FDA-Public Use
  Company Number: US-B.I. PHARMACEUTICALS,INC./RIDGEFIELD-2008-BP-14573BP

PATIENT
  Sex: Female

DRUGS (4)
  1. SPIRIVA [Suspect]
     Indication: EMPHYSEMA
     Dosage: 18MCG
     Route: 048
     Dates: start: 20080201, end: 20080501
  2. SPIRIVA [Suspect]
     Dosage: 18MCG
     Route: 048
     Dates: start: 20080901
  3. PREMARIN [Concomitant]
     Route: 048
  4. PROGESTERONE [Concomitant]
     Route: 048

REACTIONS (1)
  - WEIGHT INCREASED [None]
